FAERS Safety Report 25593052 (Version 3)
Quarter: 2025Q3

REPORT INFORMATION
  Report Type: Report from Study
  Country: US (occurrence: US)
  Receive Date: 20250722
  Receipt Date: 20250806
  Transmission Date: 20251020
  Serious: Yes (Other)
  Sender: MALLINCKRODT
  Company Number: US-MALLINCKRODT-MNK202503948

PATIENT
  Age: 48 Year
  Sex: Female

DRUGS (2)
  1. CORTICOTROPIN [Suspect]
     Active Substance: CORTICOTROPIN
     Indication: Sarcoidosis
  2. CORTICOTROPIN [Suspect]
     Active Substance: CORTICOTROPIN
     Route: 058

REACTIONS (13)
  - Rectal ulcer [Unknown]
  - Rectal haemorrhage [Unknown]
  - Dyspnoea [Unknown]
  - Back pain [Unknown]
  - Muscle spasms [Unknown]
  - Nausea [Unknown]
  - Dizziness [Unknown]
  - Eye pain [Unknown]
  - Pain [Unknown]
  - Depressed mood [Unknown]
  - Asthenia [Unknown]
  - Pyrexia [Unknown]
  - Fluid retention [Unknown]
